FAERS Safety Report 25718361 (Version 1)
Quarter: 2025Q3

REPORT INFORMATION
  Report Type: Spontaneous
  Country: US (occurrence: US)
  Receive Date: 20250823
  Receipt Date: 20250823
  Transmission Date: 20251020
  Serious: Yes (Death)
  Sender: AUROBINDO
  Company Number: US-AUROBINDO-AUR-APL-2025-043199

PATIENT
  Age: 29 Year
  Sex: Male

DRUGS (2)
  1. LEVOFLOXACIN [Suspect]
     Active Substance: LEVOFLOXACIN
     Indication: Endocarditis bacterial
     Route: 065
  2. MICAFUNGIN [Suspect]
     Active Substance: MICAFUNGIN SODIUM
     Indication: Endocarditis bacterial
     Route: 065

REACTIONS (1)
  - Drug ineffective [Fatal]
